FAERS Safety Report 5937522-8 (Version None)
Quarter: 2008Q4

REPORT INFORMATION
  Report Type: 
  Country: None (occurrence: None)
  Receive Date: 20081031
  Receipt Date: 20081020
  Transmission Date: 20090506
  Serious: Yes (Hospitalization, Other)
  Sender: FDA-Public Use
  Company Number: FI-JNJFOC-20070704119

PATIENT

DRUGS (19)
  1. REMICADE [Suspect]
     Indication: RHEUMATOID ARTHRITIS
     Route: 042
  2. TAVANIC [Concomitant]
     Indication: INFECTION PROPHYLAXIS
  3. SOLOMET [Concomitant]
  4. ERDOPECT [Concomitant]
     Dosage: 1X2
  5. ISMOX [Concomitant]
     Dosage: 1X2
  6. FURESIS [Concomitant]
  7. RETAFYLLIN [Concomitant]
     Dosage: 1X2
  8. METHOTREXATE [Concomitant]
  9. ACID FOLIC [Concomitant]
  10. EMCONCOR [Concomitant]
     Dosage: 1X2
  11. TENOX [Concomitant]
  12. ATRODUAL [Concomitant]
     Dosage: 1-4/DAY
  13. COHEMIN DEPOT [Concomitant]
     Dosage: EVERY 3 MONTHS
     Route: 050
  14. IDEOS [Concomitant]
  15. PANACOD [Concomitant]
     Dosage: 1X2
  16. SPIRIVA [Concomitant]
     Route: 055
  17. TRIMOPAN [Concomitant]
  18. MABTHERA [Concomitant]
  19. CORTISONE [Concomitant]

REACTIONS (4)
  - LUNG CANCER METASTATIC [None]
  - PERICARDITIS RHEUMATIC [None]
  - PULMONARY EMBOLISM [None]
  - WEIGHT DECREASED [None]
